FAERS Safety Report 23004723 (Version 4)
Quarter: 2025Q4

REPORT INFORMATION
  Report Type: Report from Study
  Country: US (occurrence: US)
  Receive Date: 20230929
  Receipt Date: 20251127
  Transmission Date: 20260117
  Serious: Yes (Other)
  Sender: ABBVIE
  Company Number: US-ABBVIE-5426800

PATIENT
  Age: 66 Year
  Sex: Male

DRUGS (1)
  1. RINVOQ [Suspect]
     Active Substance: UPADACITINIB
     Indication: Rheumatoid arthritis
     Route: 048
     Dates: start: 20230501, end: 202507

REACTIONS (8)
  - Neoplasm malignant [Recovering/Resolving]
  - Investigation abnormal [Unknown]
  - Hypergammaglobulinaemia benign monoclonal [Unknown]
  - Dysphonia [Unknown]
  - Musculoskeletal disorder [Not Recovered/Not Resolved]
  - Plasma cell myeloma [Unknown]
  - Inappropriate schedule of product administration [Unknown]
  - Rheumatoid arthritis [Recovered/Resolved]

NARRATIVE: CASE EVENT DATE: 20230101
